FAERS Safety Report 8140958-0 (Version None)
Quarter: 2012Q1

REPORT INFORMATION
  Report Type: 
  Country: None (occurrence: None)
  Receive Date: 20120216
  Receipt Date: 20120208
  Transmission Date: 20120608
  Serious: Yes (Congenital Anomaly, Other)
  Sender: FDA-Public Use
  Company Number: PHHY2012DK010937

PATIENT
  Sex: Female

DRUGS (2)
  1. SERTRALINE HYDROCHLORIDE [Suspect]
     Dosage: 50 MG, DAILY
     Route: 064
  2. SERTRALINE HYDROCHLORIDE [Suspect]
     Dosage: 50 MG, DAILY
     Route: 063

REACTIONS (11)
  - HYPERMOBILITY SYNDROME [None]
  - FEEDING DISORDER NEONATAL [None]
  - HYPERSOMNIA [None]
  - LUNG DISORDER [None]
  - DYSPEPSIA [None]
  - FOETAL EXPOSURE DURING PREGNANCY [None]
  - EXPOSURE DURING BREAST FEEDING [None]
  - AFFECT LABILITY [None]
  - PREMATURE BABY [None]
  - MUSCLE SPASMS [None]
  - CEREBRAL HAEMORRHAGE FOETAL [None]
